FAERS Safety Report 23708304 (Version 1)
Quarter: 2024Q2

REPORT INFORMATION
  Report Type: Spontaneous
  Country: US (occurrence: US)
  Receive Date: 20240404
  Receipt Date: 20240404
  Transmission Date: 20240716
  Serious: No
  Sender: FDA-Public Use
  Company Number: US-TEVA-VS-3178605

PATIENT
  Age: 28 Year
  Sex: Female

DRUGS (1)
  1. ALBUTEROL SULFATE [Suspect]
     Active Substance: ALBUTEROL SULFATE
     Indication: Asthma
     Dosage: 1-2 PUFFS
     Route: 055
     Dates: start: 2019

REACTIONS (7)
  - Dyspnoea [Unknown]
  - Product use issue [Unknown]
  - Device malfunction [Unknown]
  - Product use issue [Unknown]
  - Product delivery mechanism issue [Unknown]
  - Device delivery system issue [Unknown]
  - Product cleaning inadequate [Unknown]
